FAERS Safety Report 17384609 (Version 1)
Quarter: 2020Q1

REPORT INFORMATION
  Report Type: Spontaneous
  Country: US (occurrence: US)
  Receive Date: 20200206
  Receipt Date: 20200206
  Transmission Date: 20200409
  Serious: No
  Sender: FDA-Public Use
  Company Number: US-ABBVIE-19K-163-2834209-00

PATIENT
  Sex: Female

DRUGS (1)
  1. HUMIRA [Suspect]
     Active Substance: ADALIMUMAB
     Indication: HIDRADENITIS
     Route: 058
     Dates: start: 201903

REACTIONS (19)
  - Fatigue [Unknown]
  - Inflammation [Unknown]
  - Wound secretion [Not Recovered/Not Resolved]
  - Nodule [Unknown]
  - Burning sensation [Unknown]
  - Blood pressure abnormal [Unknown]
  - Polycystic ovaries [Unknown]
  - Somnolence [Unknown]
  - Pain [Unknown]
  - Depression [Unknown]
  - Food intolerance [Unknown]
  - Drug ineffective [Unknown]
  - General physical health deterioration [Unknown]
  - Sinus pain [Not Recovered/Not Resolved]
  - Scar [Unknown]
  - Hidradenitis [Unknown]
  - Hypertrichosis [Unknown]
  - Pruritus [Unknown]
  - Anxiety [Unknown]

NARRATIVE: CASE EVENT DATE: 2019
